FAERS Safety Report 7723105-6 (Version None)
Quarter: 2011Q3

REPORT INFORMATION
  Report Type: 
  Country: None (occurrence: None)
  Receive Date: 20110826
  Receipt Date: 20110812
  Transmission Date: 20111222
  Serious: Yes (Hospitalization, Other)
  Sender: FDA-Public Use
  Company Number: 1000019325

PATIENT
  Age: 39 Year
  Sex: Male
  Weight: 87 kg

DRUGS (7)
  1. ESCITALOPRAM [Suspect]
     Indication: PANIC ATTACK
     Dosage: 10, 5 MG (10, 5 MG, 1 IN 1 D), ORAL
     Route: 048
     Dates: start: 20090531, end: 20110309
  2. ESCITALOPRAM [Suspect]
     Indication: DEPRESSION
     Dosage: 10, 5 MG (10, 5 MG, 1 IN 1 D), ORAL
     Route: 048
     Dates: start: 20090531, end: 20110309
  3. ESCITALOPRAM [Suspect]
     Indication: PANIC ATTACK
     Dosage: 10, 5 MG (10, 5 MG, 1 IN 1 D), ORAL
     Route: 048
     Dates: start: 20110310
  4. ESCITALOPRAM [Suspect]
     Indication: DEPRESSION
     Dosage: 10, 5 MG (10, 5 MG, 1 IN 1 D), ORAL
     Route: 048
     Dates: start: 20110310
  5. ESCITALOPRAM [Suspect]
     Indication: PANIC ATTACK
     Dosage: 5 MG (5 MG, 1 IN 1 D) ORAL
     Route: 048
     Dates: start: 20090525, end: 20090530
  6. ESCITALOPRAM [Suspect]
     Indication: DEPRESSION
     Dosage: 5 MG (5 MG, 1 IN 1 D) ORAL
     Route: 048
     Dates: start: 20090525, end: 20090530
  7. VIANI (SALMETEROL, FLUTICASONE PROPIONATE) [Concomitant]

REACTIONS (6)
  - FATIGUE [None]
  - DISORIENTATION [None]
  - PLATELET COUNT INCREASED [None]
  - TONGUE BITING [None]
  - AMNESIA [None]
  - CONVULSION [None]
